FAERS Safety Report 13030124 (Version 13)
Quarter: 2020Q4

REPORT INFORMATION
  Report Type: Report from Study
  Country: CA (occurrence: CA)
  Receive Date: 20161215
  Receipt Date: 20201126
  Transmission Date: 20210113
  Serious: Yes (Other)
  Sender: FDA-Public Use
  Company Number: PHHY2013CA115703

PATIENT
  Age: 69 Year
  Sex: Male

DRUGS (13)
  1. SANDOSTATIN [Suspect]
     Active Substance: OCTREOTIDE ACETATE
     Indication: NEUROENDOCRINE CARCINOMA METASTATIC
     Dosage: UNK UNK, ONCE/SINGLE
     Route: 058
     Dates: start: 20121214
  2. SANDOSTATIN LAR DEPOT [Suspect]
     Active Substance: OCTREOTIDE ACETATE
     Dosage: 30 MG, Q3W (EVERY 3 WEEKS)
     Route: 030
     Dates: start: 20181005
  3. CANDESARTAN. [Suspect]
     Active Substance: CANDESARTAN
     Indication: BLOOD PRESSURE ABNORMAL
     Dosage: 4 MG
     Route: 065
     Dates: end: 20200127
  4. CANDESARTAN. [Suspect]
     Active Substance: CANDESARTAN
     Dosage: 4 MG
     Route: 048
     Dates: end: 20200203
  5. SANDOSTATIN [Suspect]
     Active Substance: OCTREOTIDE ACETATE
  6. SANDOSTATIN LAR DEPOT [Suspect]
     Active Substance: OCTREOTIDE ACETATE
     Dosage: 30 MG, Q3W (EVERY 3 WEEKS)
     Route: 030
  7. HCTZ [Concomitant]
     Active Substance: HYDROCHLOROTHIAZIDE
     Indication: BLOOD PRESSURE ABNORMAL
     Dosage: UNK
     Route: 048
     Dates: end: 20200203
  8. SANDOSTATIN LAR DEPOT [Suspect]
     Active Substance: OCTREOTIDE ACETATE
     Dosage: 30 MG, Q3W (EVERY 3 WEEKS)
     Route: 030
     Dates: start: 20140613
  9. SANDOSTATIN [Suspect]
     Active Substance: OCTREOTIDE ACETATE
  10. VITAMIN D [Concomitant]
     Active Substance: VITAMIN D NOS
     Indication: PRODUCT USED FOR UNKNOWN INDICATION
     Dosage: 4000 IU, QID
     Route: 048
     Dates: start: 2017
  11. SANDOSTATIN LAR DEPOT [Suspect]
     Active Substance: OCTREOTIDE ACETATE
     Indication: NEUROENDOCRINE CARCINOMA METASTATIC
     Dosage: 30 MG, Q3W (EVERY 3 WEEKS)
     Route: 030
     Dates: start: 20130103
  12. ALFACALCIDOL [Concomitant]
     Active Substance: ALFACALCIDOL
     Indication: PRODUCT USED FOR UNKNOWN INDICATION
     Dosage: 0.25 UG, UNK
     Route: 065
  13. TELMISARTAN. [Concomitant]
     Active Substance: TELMISARTAN
     Indication: HYPERTENSION
     Dosage: 80 MG, QD
     Route: 048
     Dates: start: 2020

REACTIONS (21)
  - Gastric polyps [Unknown]
  - Inappropriate schedule of product administration [Unknown]
  - Abdominal pain [Unknown]
  - Malignant neoplasm progression [Unknown]
  - Gastrooesophageal reflux disease [Unknown]
  - Needle issue [Unknown]
  - Dyspepsia [Unknown]
  - Body temperature decreased [Unknown]
  - Headache [Recovered/Resolved]
  - Diarrhoea [Unknown]
  - Neuroendocrine tumour [Unknown]
  - Dysuria [Unknown]
  - Blood pressure fluctuation [Unknown]
  - Fatigue [Unknown]
  - Gastroenteritis viral [Unknown]
  - Erythema [Unknown]
  - Rash [Recovering/Resolving]
  - Hypertension [Not Recovered/Not Resolved]
  - Pollakiuria [Unknown]
  - Vitamin D decreased [Unknown]
  - Injection site mass [Unknown]

NARRATIVE: CASE EVENT DATE: 20131010
